FAERS Safety Report 4392373-3 (Version None)
Quarter: 2004Q3

REPORT INFORMATION
  Report Type: 
  Country: None (occurrence: None)
  Receive Date: 20040702
  Receipt Date: 20040309
  Transmission Date: 20050211
  Serious: Yes (Other)
  Sender: FDA-Public Use
  Company Number: 2004UW04459

PATIENT
  Age: 64 Year
  Sex: Female

DRUGS (9)
  1. CRESTOR [Suspect]
     Indication: BLOOD CHOLESTEROL INCREASED
     Dosage: 2.5 MG PO
     Route: 048
  2. PLAVIX [Concomitant]
  3. SYNTHROID [Concomitant]
  4. PREMARIN [Concomitant]
  5. XANAX [Concomitant]
  6. TOPROL-XL [Concomitant]
  7. BENICAR [Concomitant]
  8. ZYRTEC [Concomitant]
  9. BABAY ASPIRIN [Concomitant]

REACTIONS (2)
  - BURNING SENSATION [None]
  - DYSPEPSIA [None]
